FAERS Safety Report 19575319 (Version 1)
Quarter: 2021Q3

REPORT INFORMATION
  Report Type: Spontaneous
  Country: CN (occurrence: CN)
  Receive Date: 20210719
  Receipt Date: 20210719
  Transmission Date: 20211014
  Serious: Yes (Other)
  Sender: FDA-Public Use
  Company Number: CN-009507513-2107CHN005057

PATIENT
  Age: 53 Year
  Sex: Male
  Weight: 56 kg

DRUGS (2)
  1. TIENAM [Suspect]
     Active Substance: CILASTATIN SODIUM\IMIPENEM
     Indication: GASTROOESOPHAGEAL CANCER
     Dosage: 0.5 G Q8H
     Route: 041
     Dates: start: 20210702, end: 20210704
  2. TIENAM [Suspect]
     Active Substance: CILASTATIN SODIUM\IMIPENEM
     Indication: LUNG ABSCESS

REACTIONS (2)
  - Cerebral atrophy [Unknown]
  - Delirium [Recovering/Resolving]

NARRATIVE: CASE EVENT DATE: 20210704
